FAERS Safety Report 17031942 (Version 8)
Quarter: 2020Q3

REPORT INFORMATION
  Report Type: Spontaneous
  Country: US (occurrence: US)
  Receive Date: 20191114
  Receipt Date: 20200727
  Transmission Date: 20201102
  Serious: Yes (Hospitalization)
  Sender: FDA-Public Use
  Company Number: US-ACTELION-A-NJ2019-197781

PATIENT
  Age: 58 Year
  Sex: Male

DRUGS (3)
  1. OPSUMIT [Suspect]
     Active Substance: MACITENTAN
     Indication: PULMONARY ARTERIAL HYPERTENSION
     Dosage: 10 MG, QD
     Route: 048
     Dates: start: 20190724
  2. REMODULIN [Concomitant]
     Active Substance: TREPROSTINIL
     Route: 058
  3. ADEMPAS [Concomitant]
     Active Substance: RIOCIGUAT

REACTIONS (11)
  - Infusion site abscess [Unknown]
  - Oedema [Unknown]
  - Erythema [Unknown]
  - Device dislocation [Unknown]
  - Nausea [Unknown]
  - Diarrhoea [Unknown]
  - Skin irritation [Unknown]
  - Catheter management [Unknown]
  - Catheter site haemorrhage [Unknown]
  - Skin mass [Unknown]
  - Catheter site discharge [Unknown]

NARRATIVE: CASE EVENT DATE: 20191026
